FAERS Safety Report 6902825-7 (Version None)
Quarter: 2010Q3

REPORT INFORMATION
  Report Type: 
  Country: None (occurrence: None)
  Receive Date: 20100803
  Receipt Date: 20080626
  Transmission Date: 20110219
  Serious: No
  Sender: FDA-Public Use
  Company Number: US-PFIZER INC-2008050524

PATIENT
  Sex: Female

DRUGS (6)
  1. LYRICA [Suspect]
     Indication: FIBROMYALGIA
     Dates: start: 20080601
  2. ANASTROZOLE [Concomitant]
  3. VYTORIN [Concomitant]
  4. ANTIDEPRESSANTS [Concomitant]
  5. MULTI-VITAMINS [Concomitant]
  6. CALCIUM [Concomitant]

REACTIONS (2)
  - MYALGIA [None]
  - SOMNOLENCE [None]
